FAERS Safety Report 8912832 (Version 1)
Quarter: 2012Q4

REPORT INFORMATION
  Report Type: 
  Country: ES (occurrence: ES)
  Receive Date: 20121115
  Receipt Date: 20121115
  Transmission Date: 20130627
  Serious: Yes (Hospitalization, Other)
  Sender: FDA-Public Use
  Company Number: ES-009507513-0611ESP00030

PATIENT
  Age: 14 Year
  Sex: Male

DRUGS (8)
  1. SINGULAIR [Suspect]
     Indication: ASTHMA
     Dosage: 10 mg, qd
     Route: 048
     Dates: start: 200605, end: 200605
  2. SINGULAIR [Suspect]
     Dosage: 10 mg, qd
     Route: 048
     Dates: start: 20061021, end: 20061115
  3. SEREVENT [Concomitant]
     Indication: ASTHMA
     Dosage: UNK UNK, PRN
     Route: 055
  4. IMMUNOTHERAPY (UNSPECIFIED) [Concomitant]
     Indication: FOOD ALLERGY
     Dates: start: 200609
  5. FLUINOL [Concomitant]
     Dosage: 1 Microgram, q12h
     Route: 055
     Dates: start: 2003, end: 200605
  6. FLUTICASONE PROPIONATE (+) SALMETEROL XINAFOATE [Concomitant]
     Dosage: UNK ?g, UNK
     Route: 055
     Dates: start: 2003, end: 200605
  7. SERETIDE [Concomitant]
     Dosage: UNK ?g, UNK
     Route: 055
     Dates: start: 200606, end: 200606
  8. RINOSONE [Concomitant]
     Dates: start: 200606, end: 200606

REACTIONS (4)
  - Mania [Recovered/Resolved]
  - Mania [Recovered/Resolved]
  - Prescribed overdose [Unknown]
  - Prescribed overdose [Unknown]
